FAERS Safety Report 9263353 (Version 1)
Quarter: 2013Q2

REPORT INFORMATION
  Report Type: Spontaneous
  Country: US (occurrence: US)
  Receive Date: 20130430
  Receipt Date: 20130430
  Transmission Date: 20140414
  Serious: No
  Sender: FDA-Public Use
  Company Number: US-ABBOTT-12P-163-1028737-00

PATIENT
  Sex: Female
  Weight: 55.39 kg

DRUGS (3)
  1. CREON [Suspect]
     Indication: DIARRHOEA
     Dosage: 3 CAPS BEFORE MEALS
     Dates: start: 201208
  2. CREON [Suspect]
     Indication: CHOLECYSTECTOMY
  3. VITAMINS [Concomitant]
     Indication: PRODUCT USED FOR UNKNOWN INDICATION

REACTIONS (1)
  - Off label use [Unknown]
